FAERS Safety Report 5637565-8 (Version None)
Quarter: 2008Q1

REPORT INFORMATION
  Report Type: 
  Country: None (occurrence: None)
  Receive Date: 20080225
  Receipt Date: 20080206
  Transmission Date: 20080703
  Serious: Yes (Hospitalization)
  Sender: FDA-Public Use
  Company Number: GB-ABBOTT-08P-167-0438702-00

PATIENT
  Age: 33 Year
  Sex: Male

DRUGS (5)
  1. VALPROATE SODIUM [Suspect]
     Indication: EPILEPSY
     Route: 048
  2. CARBAMAZEPINE [Suspect]
     Indication: EPILEPSY
     Route: 048
  3. GABAPENTIN [Concomitant]
     Indication: EPILEPSY
     Route: 048
  4. LEVETIRACETAM [Concomitant]
     Indication: EPILEPSY
     Route: 048
  5. MIDAZOLAM HCL [Concomitant]
     Indication: EPILEPSY
     Route: 048

REACTIONS (2)
  - ANKLE FRACTURE [None]
  - OSTEOPOROSIS [None]
